FAERS Safety Report 5146908-3 (Version None)
Quarter: 2006Q4

REPORT INFORMATION
  Report Type: 
  Country: None (occurrence: None)
  Receive Date: 20061109
  Receipt Date: 20061031
  Transmission Date: 20070319
  Serious: Yes (Death)
  Sender: FDA-Public Use
  Company Number: CA-BAYER-200615400GDS

PATIENT
  Age: 55 Year
  Sex: Male

DRUGS (6)
  1. SORAFENIB [Suspect]
     Indication: RENAL CELL CARCINOMA STAGE UNSPECIFIED
     Dosage: TOTAL DAILY DOSE: 800 MG
     Route: 048
     Dates: start: 20060211, end: 20061001
  2. SORAFENIB [Suspect]
     Dosage: TOTAL DAILY DOSE: 400 MG
     Route: 048
     Dates: start: 20061001, end: 20061001
  3. SODIUM PHOSPHATES [Concomitant]
     Indication: CONSTIPATION
     Route: 054
     Dates: start: 20061027, end: 20061027
  4. IMODIUM [Concomitant]
     Indication: DIARRHOEA
     Route: 048
     Dates: start: 20060601
  5. MORPHINE SP [Concomitant]
     Indication: PAIN
     Route: 048
     Dates: start: 20051226
  6. MIRTAZAPINE [Concomitant]
     Indication: DECREASED APPETITE
     Route: 048

REACTIONS (1)
  - PULMONARY EMBOLISM [None]
